FAERS Safety Report 16187949 (Version 1)
Quarter: 2019Q2

REPORT INFORMATION
  Report Type: Spontaneous
  Country: US (occurrence: US)
  Receive Date: 20190412
  Receipt Date: 20190412
  Transmission Date: 20190711
  Serious: Yes (Other)
  Sender: FDA-Public Use
  Company Number: US-ALKEM LABORATORIES LIMITED-PL-ALKEM-2018-01340

PATIENT
  Age: 53 Year
  Sex: Male

DRUGS (2)
  1. QUETIAPINE FUMARATE. [Suspect]
     Active Substance: QUETIAPINE FUMARATE
     Indication: PRODUCT USED FOR UNKNOWN INDICATION
     Dosage: UNK
     Route: 048
  2. QUETIAPINE FUMARATE. [Suspect]
     Active Substance: QUETIAPINE FUMARATE
     Dosage: UNK, INCREASED THE DAILY DOSES BY HIMSELF
     Route: 065

REACTIONS (5)
  - Dreamy state [Unknown]
  - Drug ineffective [Unknown]
  - Drug abuse [Unknown]
  - Hypersomnia [Unknown]
  - Intentional product misuse [Unknown]
